FAERS Safety Report 13763988 (Version 2)
Quarter: 2018Q1

REPORT INFORMATION
  Report Type: Spontaneous
  Country: US (occurrence: US)
  Receive Date: 20170718
  Receipt Date: 20180115
  Transmission Date: 20180508
  Serious: No
  Sender: FDA-Public Use
  Company Number: US-VANDA PHARMACEUTICALS, INC-2017TASUS001500

PATIENT
  Sex: Male

DRUGS (2)
  1. HETLIOZ [Suspect]
     Active Substance: TASIMELTEON
     Indication: BLINDNESS
     Dosage: 20 MG, ONCE EVERY DAY AT BEDTIME
     Route: 048
     Dates: start: 20161221
  2. HETLIOZ [Suspect]
     Active Substance: TASIMELTEON
     Dosage: DOUBLE OR TRIPLE DOSING
     Route: 048

REACTIONS (4)
  - Confusional state [Unknown]
  - Frustration tolerance decreased [Unknown]
  - Drug ineffective [Unknown]
  - Intentional overdose [Unknown]
